FAERS Safety Report 7990471-6 (Version None)
Quarter: 2011Q4

REPORT INFORMATION
  Report Type: 
  Country: None (occurrence: None)
  Receive Date: 20111219
  Receipt Date: 20110325
  Transmission Date: 20120403
  Serious: No
  Sender: FDA-Public Use
  Company Number: US-ASTRAZENECA-2004UW20889

PATIENT
  Age: 72 Year
  Sex: Female
  Weight: 63.5 kg

DRUGS (8)
  1. CRESTOR [Suspect]
     Indication: HYPERCHOLESTEROLAEMIA
     Route: 048
     Dates: start: 20040901
  2. TOPROL-XL [Suspect]
     Indication: HYPERTENSION
     Route: 048
  3. CELEBREX [Concomitant]
     Indication: ARTHRITIS
  4. TOPROL-XL [Suspect]
     Route: 048
     Dates: start: 20070101
  5. PLAVIX [Concomitant]
  6. TOPROL-XL [Suspect]
     Indication: CARDIAC DISORDER
     Route: 048
  7. TOPROL-XL [Suspect]
     Route: 048
     Dates: start: 20070101
  8. ASPIRIN [Concomitant]
     Indication: CARDIAC DISORDER

REACTIONS (13)
  - FATIGUE [None]
  - VERTIGO [None]
  - DIZZINESS [None]
  - INCREASED UPPER AIRWAY SECRETION [None]
  - FOREIGN BODY [None]
  - COUGH [None]
  - WHEEZING [None]
  - LOSS OF CONSCIOUSNESS [None]
  - INFLUENZA LIKE ILLNESS [None]
  - CONSTIPATION [None]
  - DYSPNOEA [None]
  - COLD SWEAT [None]
  - UPPER-AIRWAY COUGH SYNDROME [None]
